FAERS Safety Report 18207832 (Version 1)
Quarter: 2020Q3

REPORT INFORMATION
  Report Type: Spontaneous
  Country: MX (occurrence: MX)
  Receive Date: 20200828
  Receipt Date: 20200828
  Transmission Date: 20201103
  Serious: Yes (Death)
  Sender: FDA-Public Use
  Company Number: NVSC2020MX237779

PATIENT
  Sex: Male

DRUGS (1)
  1. GLIVEC [Suspect]
     Active Substance: IMATINIB MESYLATE
     Indication: CHRONIC MYELOID LEUKAEMIA
     Dosage: 400 MG (4 OF 100 MG)
     Route: 065

REACTIONS (6)
  - Blood uric acid increased [Unknown]
  - Anxiety [Unknown]
  - Blood triglycerides increased [Unknown]
  - Death [Fatal]
  - Feeling abnormal [Unknown]
  - Hypoaesthesia [Unknown]
